FAERS Safety Report 23636436 (Version 1)
Quarter: 2024Q1

REPORT INFORMATION
  Report Type: Spontaneous
  Country: HR (occurrence: HR)
  Receive Date: 20240315
  Receipt Date: 20240315
  Transmission Date: 20240410
  Serious: Yes (Hospitalization)
  Sender: FDA-Public Use
  Company Number: HR-HALMED-300084135

PATIENT
  Age: 36 Year
  Sex: Female
  Weight: 57 kg

DRUGS (3)
  1. CHORIOGONADOTROPIN ALFA [Suspect]
     Active Substance: CHORIOGONADOTROPIN ALFA
     Indication: Artificial insemination
     Dosage: DRUG STRENGTH 250 MICROGRAMS, ?DOSAGE 1 INJECTION ONCE A MONTH
     Route: 058
     Dates: start: 20240221, end: 20240221
  2. MESALAMINE [Suspect]
     Active Substance: MESALAMINE
     Indication: Colitis ulcerative
     Dosage: 1 G DAILY
     Route: 054
  3. MESALAMINE [Concomitant]
     Active Substance: MESALAMINE
     Indication: Colitis ulcerative
     Dosage: 1 G 3 TIMES DAILY
     Route: 048

REACTIONS (6)
  - Visual impairment [Recovering/Resolving]
  - Vertigo [Recovering/Resolving]
  - Asthenia [Recovering/Resolving]
  - Syncope [Recovering/Resolving]
  - Cold sweat [Recovering/Resolving]
  - Nausea [Recovering/Resolving]

NARRATIVE: CASE EVENT DATE: 20240221
